FAERS Safety Report 21747401 (Version 1)
Quarter: 2022Q4

REPORT INFORMATION
  Report Type: Spontaneous
  Country: US (occurrence: US)
  Receive Date: 20221219
  Receipt Date: 20221219
  Transmission Date: 20230112
  Serious: Yes (Hospitalization, Other)
  Sender: FDA-Public Use
  Company Number: US-GSKCCFUS-Case-01582407_AE-89407

PATIENT

DRUGS (1)
  1. LAMICTAL [Suspect]
     Active Substance: LAMOTRIGINE
     Indication: Product used for unknown indication
     Dosage: 175 MG, BID
     Dates: start: 202203

REACTIONS (2)
  - Epilepsy surgery [Unknown]
  - Seizure [Unknown]

NARRATIVE: CASE EVENT DATE: 20221130
